FAERS Safety Report 8286443-7 (Version None)
Quarter: 2012Q2

REPORT INFORMATION
  Report Type: 
  Country: None (occurrence: None)
  Receive Date: 20120416
  Receipt Date: 20120411
  Transmission Date: 20120825
  Serious: Yes (Hospitalization, Congenital Anomaly, Other)
  Sender: FDA-Public Use
  Company Number: US-PFIZER INC-2010109641

PATIENT
  Sex: Female
  Weight: 2.895 kg

DRUGS (6)
  1. FOLIC ACID [Concomitant]
     Dosage: UNK
     Route: 064
  2. MULTI-VITAMINS [Concomitant]
     Route: 064
  3. ACETAMINOPHEN [Concomitant]
     Dosage: 325 MG, 1 TO 2 TABLETS EVERY 4 HRS
     Route: 064
  4. ZOLOFT [Suspect]
     Indication: ANXIETY
     Dosage: 100 MG, 1X/DAY
     Route: 064
  5. VITAMIN B-12 [Concomitant]
     Dosage: UNK
     Route: 064
  6. FERROUS FUMARATE [Concomitant]
     Dosage: UNK
     Route: 064

REACTIONS (18)
  - FOETAL EXPOSURE DURING PREGNANCY [None]
  - BUNDLE BRANCH BLOCK [None]
  - CARDIAC FAILURE CONGESTIVE [None]
  - CONVULSION [None]
  - SPEECH DISORDER [None]
  - BRADYCARDIA NEONATAL [None]
  - FALLOT'S TETRALOGY [None]
  - ILEUS PARALYTIC [None]
  - TRANSPOSITION OF THE GREAT VESSELS [None]
  - CONGENITAL JAW MALFORMATION [None]
  - MITRAL VALVE INCOMPETENCE [None]
  - JAUNDICE NEONATAL [None]
  - HEART DISEASE CONGENITAL [None]
  - PATENT DUCTUS ARTERIOSUS [None]
  - BREAST ENLARGEMENT [None]
  - ATRIAL SEPTAL DEFECT [None]
  - CLEFT PALATE [None]
  - INFANTILE APNOEIC ATTACK [None]
